FAERS Safety Report 9193196 (Version 2)
Quarter: 2013Q1

REPORT INFORMATION
  Report Type: Spontaneous
  Country: CH (occurrence: CH)
  Receive Date: 20130327
  Receipt Date: 20130327
  Transmission Date: 20140127
  Serious: Yes (Hospitalization)
  Sender: FDA-Public Use
  Company Number: CH-SANOFI-AVENTIS-A01200603762

PATIENT
  Age: 75 Year
  Sex: Male

DRUGS (4)
  1. CLOPIDOGREL BISULFATE [Suspect]
     Indication: THROMBOSIS PROPHYLAXIS
     Dosage: UNIT DOSE: 75 MG
     Route: 048
     Dates: start: 20060320, end: 20060407
  2. CLOPIDOGREL BISULFATE [Suspect]
     Indication: CEREBROVASCULAR DISORDER
     Dosage: UNIT DOSE: 75 MG
     Route: 048
     Dates: start: 20060320, end: 20060407
  3. NOVALGIN [Suspect]
     Indication: ARTHRALGIA
     Dosage: UNIT DOSE: 500 MG
     Route: 048
     Dates: start: 20060325, end: 20060407
  4. ALLOPURINOL [Concomitant]
     Indication: PRODUCT USED FOR UNKNOWN INDICATION
     Route: 048
     Dates: start: 2005, end: 20060407

REACTIONS (2)
  - Agranulocytosis [Recovered/Resolved]
  - Pneumonia [Recovered/Resolved]
